FAERS Safety Report 5884477-0 (Version None)
Quarter: 2008Q3

REPORT INFORMATION
  Report Type: 
  Country: None (occurrence: None)
  Receive Date: 20080916
  Receipt Date: 20080905
  Transmission Date: 20090109
  Serious: Yes (Other)
  Sender: FDA-Public Use
  Company Number: GB-RANBAXY-2008RR-17911

PATIENT

DRUGS (3)
  1. DOXYCYCLIN BASICS 100 MG [Suspect]
     Indication: ENDOMETRIOSIS
  2. FLAGYL [Suspect]
     Indication: ENDOMETRIOSIS
     Dosage: 1200 MG, QD
     Route: 048
     Dates: start: 20080717, end: 20080724
  3. DOXYCYCLINE [Concomitant]

REACTIONS (1)
  - ULTRASOUND SCAN ABNORMAL [None]
